FAERS Safety Report 8572533-8 (Version None)
Quarter: 2012Q3

REPORT INFORMATION
  Report Type: 
  Country: None (occurrence: None)
  Receive Date: 20120806
  Receipt Date: 20120724
  Transmission Date: 20120928
  Serious: Yes (Other)
  Sender: FDA-Public Use
  Company Number: JP-ROCHE-1094005

PATIENT
  Sex: Female
  Weight: 52 kg

DRUGS (9)
  1. RISUMIC [Concomitant]
     Route: 048
  2. OXATOMIDE [Concomitant]
     Route: 048
  3. NEUROVITAN (UKRAINE) [Concomitant]
     Route: 048
  4. IRON SUCROSE [Concomitant]
     Route: 042
  5. CALCIUM CARBONATE [Concomitant]
     Route: 048
  6. MIRCERA [Suspect]
     Indication: NEPHROGENIC ANAEMIA
     Route: 042
     Dates: start: 20120316, end: 20120620
  7. TICLOPIDINE HYDROCHLORIDE [Suspect]
     Indication: PRODUCT USED FOR UNKNOWN INDICATION
     Route: 048
  8. ASPIRIN AND DIHYDROXYALUMINUM AMINOACETATE AND MAGNESIUM CARBONATE [Suspect]
     Indication: PRODUCT USED FOR UNKNOWN INDICATION
     Route: 048
  9. DOPS (JAPAN) [Concomitant]
     Dosage: PRE-DIALYSIS
     Route: 048

REACTIONS (2)
  - ANAEMIA [None]
  - EPISTAXIS [None]
